FAERS Safety Report 17487679 (Version 1)
Quarter: 2020Q1

REPORT INFORMATION
  Report Type: Spontaneous
  Country: US (occurrence: US)
  Receive Date: 20200303
  Receipt Date: 20200303
  Transmission Date: 20200409
  Serious: No
  Sender: FDA-Public Use
  Company Number: US-ALLERGAN-1914368US

PATIENT
  Age: 72 Year
  Sex: Female

DRUGS (2)
  1. SAVELLA [Suspect]
     Active Substance: MILNACIPRAN HYDROCHLORIDE
     Indication: FIBROMYALGIA
     Dosage: 12.5 MG, QAM
     Route: 048
     Dates: start: 20181218
  2. AMITRIPTYLINE [Concomitant]
     Active Substance: AMITRIPTYLINE
     Indication: FIBROMYALGIA
     Dosage: UNK, QPM
     Route: 048

REACTIONS (6)
  - Genital erythema [Unknown]
  - Oedema genital [Unknown]
  - Vulvovaginal pruritus [Unknown]
  - Vulvovaginal burning sensation [Unknown]
  - Mucosal inflammation [Unknown]
  - Genital discomfort [Unknown]

NARRATIVE: CASE EVENT DATE: 201903
